FAERS Safety Report 19923058 (Version 1)
Quarter: 2021Q4

REPORT INFORMATION
  Report Type: Report from Study
  Country: None (occurrence: US)
  Receive Date: 20211005
  Receipt Date: 20211005
  Transmission Date: 20220304
  Serious: Yes (Hospitalization)
  Sender: FDA-Public Use
  Company Number: US-ABBVIE-21P-163-4096602-00

PATIENT
  Age: 71 Year
  Sex: Female
  Weight: 100.9 kg

DRUGS (3)
  1. IBRUTINIB [Suspect]
     Active Substance: IBRUTINIB
     Indication: Chronic lymphocytic leukaemia
     Dosage: 28 DAY CYCLE
     Route: 048
     Dates: start: 20210907, end: 20210907
  2. IBRUTINIB [Suspect]
     Active Substance: IBRUTINIB
     Dosage: 28 DAY CYCLE
     Route: 048
     Dates: start: 20210910
  3. OBINUTUZUMAB [Concomitant]
     Active Substance: OBINUTUZUMAB
     Indication: Chronic lymphocytic leukaemia
     Route: 042
     Dates: start: 20210907, end: 20210907

REACTIONS (2)
  - Hyperkalaemia [Recovered/Resolved]
  - Hyperphosphataemia [Recovered/Resolved]

NARRATIVE: CASE EVENT DATE: 20210908
